FAERS Safety Report 4498408-1 (Version None)
Quarter: 2004Q4

REPORT INFORMATION
  Report Type: 
  Country: None (occurrence: None)
  Receive Date: 20041105
  Receipt Date: 20041025
  Transmission Date: 20050328
  Serious: Yes (Disabling)
  Sender: FDA-Public Use
  Company Number: 2004UW22324

PATIENT
  Age: 30 Year
  Sex: Female

DRUGS (1)
  1. ZOLADEX [Suspect]
     Indication: ENDOMETRIOSIS
     Dosage: 3.6 MG SQ
     Route: 058
     Dates: start: 20040701

REACTIONS (2)
  - HEMIPARESIS [None]
  - VULVAL DISORDER [None]
